FAERS Safety Report 7793260-0 (Version None)
Quarter: 2011Q4

REPORT INFORMATION
  Report Type: 
  Country: None (occurrence: None)
  Receive Date: 20111003
  Receipt Date: 20110922
  Transmission Date: 20120403
  Serious: Yes (Hospitalization)
  Sender: FDA-Public Use
  Company Number: US-ASTRAZENECA-2011SE57317

PATIENT
  Age: 34 Year
  Sex: Male
  Weight: 117.9 kg

DRUGS (12)
  1. XANAX [Concomitant]
  2. DAOLAN [Concomitant]
  3. JENUVIA [Concomitant]
  4. NOVOLOG XR [Concomitant]
     Indication: DIABETES MELLITUS
     Dosage: SLIDING SCALE
  5. CLONAZEPAM [Concomitant]
     Dosage: BID
  6. FORTAB [Concomitant]
  7. SEROQUEL XR [Suspect]
     Indication: BIPOLAR DISORDER
     Route: 048
     Dates: start: 20090101
  8. PLAVIX [Concomitant]
  9. LANTUS [Concomitant]
  10. CRESTOR [Suspect]
     Route: 048
  11. BYEORIN [Concomitant]
  12. ZIPROFLOMAX HCL [Concomitant]

REACTIONS (3)
  - BLOOD CALCIUM INCREASED [None]
  - MALAISE [None]
  - NAUSEA [None]
